FAERS Safety Report 13825161 (Version 4)
Quarter: 2018Q3

REPORT INFORMATION
  Report Type: Spontaneous
  Country: JP (occurrence: JP)
  Receive Date: 20170802
  Receipt Date: 20180910
  Transmission Date: 20181010
  Serious: Yes (Hospitalization)
  Sender: FDA-Public Use
  Company Number: JP-EISAI MEDICAL RESEARCH-EC-2017-029738

PATIENT
  Age: 23 Year
  Sex: Female

DRUGS (5)
  1. SODIUM VALPROATE [Concomitant]
     Active Substance: VALPROATE SODIUM
     Indication: PRODUCT USED FOR UNKNOWN INDICATION
     Dosage: UNKNOWN
  2. PHENYTOIN. [Concomitant]
     Active Substance: PHENYTOIN
     Indication: PRODUCT USED FOR UNKNOWN INDICATION
     Dosage: UNKNOWN
  3. FYCOMPA [Concomitant]
     Active Substance: PERAMPANEL
     Indication: PRODUCT USED FOR UNKNOWN INDICATION
     Dosage: UNKNOWN
  4. EXCEGRAN [Concomitant]
     Active Substance: ZONISAMIDE
     Indication: PRODUCT USED FOR UNKNOWN INDICATION
     Dosage: UNKNOWN
  5. INOVELON [Suspect]
     Active Substance: RUFINAMIDE
     Indication: LENNOX-GASTAUT SYNDROME
     Dosage: UNKNOWN
     Route: 048

REACTIONS (2)
  - Seizure cluster [Recovering/Resolving]
  - Pancreatitis [Recovering/Resolving]
